FAERS Safety Report 9442889 (Version 2)
Quarter: 2014Q1

REPORT INFORMATION
  Report Type: Spontaneous
  Country: US (occurrence: US)
  Receive Date: 20130806
  Receipt Date: 20140116
  Transmission Date: 20141002
  Serious: Yes (Hospitalization, Other)
  Sender: FDA-Public Use
  Company Number: US-PFIZER INC-2013227736

PATIENT
  Age: 6 Year
  Sex: Female

DRUGS (4)
  1. CHILDRENS ADVIL [Suspect]
     Indication: NASOPHARYNGITIS
     Dosage: 100 MG/5 ML FOUR TIMES DAILY AS NEEDED
     Route: 048
     Dates: start: 20111031, end: 20111104
  2. CHILDRENS ADVIL [Suspect]
     Indication: OROPHARYNGEAL PAIN
  3. CHILDRENS ADVIL [Suspect]
     Indication: PAIN
  4. CHILDRENS ADVIL [Suspect]
     Indication: PYREXIA

REACTIONS (2)
  - Stevens-Johnson syndrome [Unknown]
  - Toxic epidermal necrolysis [Unknown]
